FAERS Safety Report 16266781 (Version 1)
Quarter: 2019Q2

REPORT INFORMATION
  Report Type: Spontaneous
  Country: US (occurrence: US)
  Receive Date: 20190502
  Receipt Date: 20190502
  Transmission Date: 20190711
  Serious: Yes (Other)
  Sender: FDA-Public Use
  Company Number: US-SA-2019SA117325

PATIENT
  Age: 63 Year
  Sex: Male

DRUGS (74)
  1. ONDANSETRON [Concomitant]
     Active Substance: ONDANSETRON
  2. CEFAZOLIN [Concomitant]
     Active Substance: CEFAZOLIN
  3. CHOLECALCIFEROL [Concomitant]
     Active Substance: CHOLECALCIFEROL
  4. DARBEPOETIN ALFA [Concomitant]
     Active Substance: DARBEPOETIN ALFA
  5. DIPHENHYDRAMINE. [Concomitant]
     Active Substance: DIPHENHYDRAMINE
  6. FUROSEMIDE. [Concomitant]
     Active Substance: FUROSEMIDE
  7. NYSTATIN. [Concomitant]
     Active Substance: NYSTATIN
  8. POTASSIUM CHLORIDE. [Concomitant]
     Active Substance: POTASSIUM CHLORIDE
  9. TERAZOSIN [Concomitant]
     Active Substance: TERAZOSIN\TERAZOSIN HYDROCHLORIDE
  10. CALCIUM CARBONATE. [Concomitant]
     Active Substance: CALCIUM CARBONATE
  11. BASILIXIMAB [Concomitant]
     Active Substance: BASILIXIMAB
  12. MYCOPHENOLIC ACID. [Concomitant]
     Active Substance: MYCOPHENOLIC ACID
  13. DIAZEPAM. [Concomitant]
     Active Substance: DIAZEPAM
  14. CLONIDINE. [Concomitant]
     Active Substance: CLONIDINE
  15. DEXTROSE. [Concomitant]
     Active Substance: DEXTROSE
  16. MAGNESIUM SULFATE. [Concomitant]
     Active Substance: MAGNESIUM SULFATE
  17. METOCLOPRAMIDE. [Concomitant]
     Active Substance: METOCLOPRAMIDE
  18. METRONIDAZOLE. [Concomitant]
     Active Substance: METRONIDAZOLE
  19. NALOXONE [Concomitant]
     Active Substance: NALOXONE
  20. PANTOPRAZOLE [Concomitant]
     Active Substance: PANTOPRAZOLE
  21. CLOPIDOGREL [Concomitant]
     Active Substance: CLOPIDOGREL BISULFATE
  22. SODIUM PHOSPHATE [Concomitant]
     Active Substance: SODIUM PHOSPHATE
  23. RANITIDINE. [Concomitant]
     Active Substance: RANITIDINE
  24. SUCRALFATE. [Concomitant]
     Active Substance: SUCRALFATE
  25. DAPTOMYCIN. [Concomitant]
     Active Substance: DAPTOMYCIN
  26. DEXAMETHASONE. [Concomitant]
     Active Substance: DEXAMETHASONE
  27. THYMOGLOBULIN [Suspect]
     Active Substance: LAPINE T-LYMPHOCYTE IMMUNE GLOBULIN
  28. ACETAMINOPHEN. [Concomitant]
     Active Substance: ACETAMINOPHEN
  29. OXYCODONE [Concomitant]
     Active Substance: OXYCODONE
  30. PIPERACILLIN AND TAZOBACTAM [Concomitant]
     Active Substance: PIPERACILLIN SODIUM\TAZOBACTAM SODIUM
  31. ALPRAZOLAM. [Concomitant]
     Active Substance: ALPRAZOLAM
  32. FAMOTIDINE. [Concomitant]
     Active Substance: FAMOTIDINE
  33. INSULIN LISPRO [Concomitant]
     Active Substance: INSULIN LISPRO
  34. METOPROLOL. [Concomitant]
     Active Substance: METOPROLOL
  35. ROPIVACAINE. [Concomitant]
     Active Substance: ROPIVACAINE HYDROCHLORIDE
  36. VANCOMYCIN [Concomitant]
     Active Substance: VANCOMYCIN
  37. MYCOPHENOLATE SODIUM [Concomitant]
     Active Substance: MYCOPHENOLATE SODIUM
  38. HEPARIN [Concomitant]
     Active Substance: HEPARIN SODIUM
  39. DOCUSATE;SENNA [Concomitant]
  40. CALCIUM ACETATE. [Concomitant]
     Active Substance: CALCIUM ACETATE
  41. CEFEPIME [Concomitant]
     Active Substance: CEFEPIME HYDROCHLORIDE
  42. CIPROFLOXACIN. [Concomitant]
     Active Substance: CIPROFLOXACIN
  43. INSULIN [Concomitant]
     Active Substance: INSULIN NOS
  44. TAMSULOSIN [Concomitant]
     Active Substance: TAMSULOSIN
  45. CARVEDILOL. [Concomitant]
     Active Substance: CARVEDILOL
  46. METOPROLOL TARTRATE. [Concomitant]
     Active Substance: METOPROLOL TARTRATE
  47. POLYETHYLENE GLYCOL [Concomitant]
     Active Substance: POLYETHYLENE GLYCOLS
  48. SULFAMETHOXAZOLE [Concomitant]
     Active Substance: SULFAMETHOXAZOLE
  49. CALCIUM GLUCONATE. [Concomitant]
     Active Substance: CALCIUM GLUCONATE
  50. EPHEDRINE. [Concomitant]
     Active Substance: EPHEDRINE
  51. GANCICLOVIR. [Concomitant]
     Active Substance: GANCICLOVIR
  52. ISOPHANE INSULIN [Concomitant]
     Active Substance: INSULIN NOS
  53. TACROLIMUS. [Concomitant]
     Active Substance: TACROLIMUS
  54. PREDNISONE. [Concomitant]
     Active Substance: PREDNISONE
  55. VALGANCICLOVIR. [Concomitant]
     Active Substance: VALGANCICLOVIR
  56. DESMOPRESSIN [Concomitant]
     Active Substance: DESMOPRESSIN
  57. PROCHLORPERAZINE. [Concomitant]
     Active Substance: PROCHLORPERAZINE
  58. MIDAZOLAM [Concomitant]
     Active Substance: MIDAZOLAM HYDROCHLORIDE
  59. HYDROMORPHONE [Concomitant]
     Active Substance: HYDROMORPHONE
  60. ROSUVASTATIN. [Concomitant]
     Active Substance: ROSUVASTATIN
  61. ALBUMIN [Concomitant]
     Active Substance: ALBUMIN HUMAN
  62. CALCIUM [Concomitant]
     Active Substance: CALCIUM
  63. SODIUM CHLORIDE. [Concomitant]
     Active Substance: SODIUM CHLORIDE
  64. TRIMETHOPRIM SULFAMETHOXAZOLE [Concomitant]
     Active Substance: SULFAMETHOXAZOLE\TRIMETHOPRIM
  65. LOPERAMIDE [Concomitant]
     Active Substance: LOPERAMIDE
  66. MIRTAZAPINE. [Concomitant]
     Active Substance: MIRTAZAPINE
  67. POTASSIUM PHOSPHATES [Concomitant]
     Active Substance: POTASSIUM PHOSPHATE, DIBASIC\POTASSIUM PHOSPHATE, MONOBASIC
  68. RITUXIMAB. [Concomitant]
     Active Substance: RITUXIMAB
  69. MAGNESIUM [Concomitant]
     Active Substance: MAGNESIUM
  70. BACITRACIN. [Concomitant]
     Active Substance: BACITRACIN
  71. HYDRALAZINE [Concomitant]
     Active Substance: HYDRALAZINE HYDROCHLORIDE
  72. LIDOCAINE. [Concomitant]
     Active Substance: LIDOCAINE
  73. RED BLOOD CELLS-LEUKOCYTES REDUCED [Concomitant]
     Active Substance: HUMAN RED BLOOD CELL
  74. DOCUSATE SODIUM. [Concomitant]
     Active Substance: DOCUSATE SODIUM

REACTIONS (1)
  - Sepsis [Recovered/Resolved]

NARRATIVE: CASE EVENT DATE: 20170329
